FAERS Safety Report 7179749-6 (Version None)
Quarter: 2010Q4

REPORT INFORMATION
  Report Type: 
  Country: None (occurrence: None)
  Receive Date: 20101221
  Receipt Date: 20101214
  Transmission Date: 20110411
  Serious: Yes (Other)
  Sender: FDA-Public Use
  Company Number: JP-ROCHE-748691

PATIENT
  Sex: Female

DRUGS (14)
  1. ACTEMRA [Suspect]
     Indication: RHEUMATOID ARTHRITIS
     Route: 041
     Dates: start: 20090826, end: 20090826
  2. ACTEMRA [Suspect]
     Route: 041
     Dates: start: 20090921, end: 20090921
  3. ACTEMRA [Suspect]
     Route: 041
     Dates: start: 20091030, end: 20091030
  4. ACTEMRA [Suspect]
     Route: 041
     Dates: start: 20091126, end: 20091126
  5. ACTEMRA [Suspect]
     Route: 041
     Dates: start: 20091224, end: 20091224
  6. ACTEMRA [Suspect]
     Route: 041
     Dates: start: 20100128, end: 20100128
  7. ACTEMRA [Suspect]
     Route: 041
     Dates: start: 20100225
  8. PREDONINE [Concomitant]
     Route: 048
  9. AMLODIN [Concomitant]
     Route: 048
  10. TAKEPRON [Concomitant]
     Dosage: PERORAL AGENT
     Route: 048
  11. DIART [Concomitant]
     Route: 048
  12. EVISTA [Concomitant]
     Route: 048
  13. LUPRAC [Concomitant]
     Route: 048
  14. MUCOSTA [Concomitant]
     Route: 048

REACTIONS (1)
  - HAEMATURIA [None]
